FAERS Safety Report 8917824 (Version 6)
Quarter: 2013Q3

REPORT INFORMATION
  Report Type: Spontaneous
  Country: US (occurrence: US)
  Receive Date: 20121120
  Receipt Date: 20130731
  Transmission Date: 20140515
  Serious: Yes (Hospitalization, Other)
  Sender: FDA-Public Use
  Company Number: US-PFIZER INC-2012286629

PATIENT
  Age: 76 Year
  Sex: Female
  Weight: 58 kg

DRUGS (6)
  1. XALATAN [Suspect]
     Indication: OPEN ANGLE GLAUCOMA
     Dosage: UNK
     Dates: start: 2008
  2. XALATAN [Suspect]
     Dosage: UNK
     Route: 047
     Dates: start: 2008
  3. LATANOPROST [Suspect]
     Indication: BLINDNESS
     Dosage: UNK, 2X/DAY
     Route: 047
  4. LATANOPROST [Suspect]
     Indication: GLAUCOMA
     Dosage: UNK, 2X/DAY
     Route: 047
     Dates: start: 201301, end: 201301
  5. LATANOPROST [Suspect]
     Dosage: UNK
  6. LISINOPRIL W/HYDROCHLOROTHIAZIDE [Concomitant]
     Indication: HYPERTENSION
     Dosage: 1 DF, UNK

REACTIONS (17)
  - Fall [Unknown]
  - Visual impairment [Unknown]
  - Swelling face [Unknown]
  - Arthropathy [Unknown]
  - Hypersensitivity [Unknown]
  - Eye swelling [Unknown]
  - Blood potassium decreased [Unknown]
  - Malaise [Unknown]
  - Nervousness [Unknown]
  - Emotional distress [Unknown]
  - Blood test abnormal [Unknown]
  - Haematocrit decreased [Unknown]
  - Feeling abnormal [Unknown]
  - Acne [Recovered/Resolved]
  - Eye disorder [Recovered/Resolved]
  - Hypersensitivity [Recovered/Resolved]
  - Back pain [Unknown]
